FAERS Safety Report 8141612-1 (Version None)
Quarter: 2012Q1

REPORT INFORMATION
  Report Type: 
  Country: None (occurrence: None)
  Receive Date: 20120103
  Receipt Date: 20111022
  Transmission Date: 20120608
  Serious: No
  Sender: FDA-Public Use
  Company Number: AE-2011-002597

PATIENT
  Age: 62 Year
  Sex: Male
  Weight: 79.3795 kg

DRUGS (6)
  1. PEGASYS [Concomitant]
  2. IBUPROFEN [Concomitant]
  3. IBUPROFEN (ADVIL) [Concomitant]
  4. RIBAPAK (RIBAVIRIN) [Concomitant]
  5. INCIVEK [Suspect]
     Dosage: 2250 MG (750 MG,3 IN 1 D),ORAL
     Route: 048
     Dates: start: 20110826
  6. LOMOTIL [Concomitant]

REACTIONS (2)
  - OEDEMA PERIPHERAL [None]
  - DIARRHOEA [None]
